FAERS Safety Report 8509985-5 (Version None)
Quarter: 2012Q3

REPORT INFORMATION
  Report Type: 
  Country: None (occurrence: None)
  Receive Date: 20120713
  Receipt Date: 20120702
  Transmission Date: 20120928
  Serious: No
  Sender: FDA-Public Use
  Company Number: US-ASTRAZENECA-2012SE45204

PATIENT
  Age: 66 Year
  Sex: Female
  Weight: 82.1 kg

DRUGS (9)
  1. ACIPHEX [Concomitant]
  2. ADVAIR DISKUS 100/50 [Concomitant]
  3. NEXIUM [Suspect]
     Indication: OESOPHAGEAL SPASM
     Route: 048
  4. SINGULAIR [Concomitant]
     Indication: CHRONIC OBSTRUCTIVE PULMONARY DISEASE
  5. NEXIUM [Suspect]
     Indication: GASTROOESOPHAGEAL REFLUX DISEASE
     Route: 048
  6. DELIREST [Concomitant]
     Indication: GASTROOESOPHAGEAL REFLUX DISEASE
  7. SPIRIVA [Concomitant]
  8. PRILOSEC [Suspect]
     Route: 048
  9. VERAPAMIL [Concomitant]

REACTIONS (2)
  - CHRONIC OBSTRUCTIVE PULMONARY DISEASE [None]
  - DRUG INEFFECTIVE [None]
